FAERS Safety Report 9538695 (Version 2)
Quarter: 2014Q1

REPORT INFORMATION
  Report Type: Spontaneous
  Country: US (occurrence: None)
  Receive Date: 20130517
  Receipt Date: 20131120
  Transmission Date: 20141002
  Serious: No
  Sender: FDA-Public Use
  Company Number: 1000042939

PATIENT
  Age: 53 Year
  Sex: Female

DRUGS (7)
  1. VIIBRYD (VILAZODONE HYDROCHLORIDE) (10 MILLIGRAM, TABLETS) [Suspect]
     Indication: ANXIETY
     Route: 048
     Dates: start: 20130213, end: 20130219
  2. ALPRAZOLAM (ALPRAZOLAM) [Concomitant]
  3. SINGULAIR (MONTELUKAST SODIUM) [Concomitant]
  4. SYMBICORT (BUDESONIDE W/FORMOTGEROL FUMARATE) [Concomitant]
  5. VITAMIN D (VITAMIN D) [Concomitant]
  6. PRAVASTATIN (PRAVASTATIN) [Concomitant]
  7. VIIBRYD (VILAZODONE HYDROCHLORIDE) (20 MILLIGRAM, TABLETS) [Suspect]
     Indication: ANXIETY
     Route: 048
     Dates: start: 20130220, end: 2013

REACTIONS (2)
  - Tinnitus [None]
  - Off label use [None]
